FAERS Safety Report 7782538-2 (Version None)
Quarter: 2011Q3

REPORT INFORMATION
  Report Type: 
  Country: None (occurrence: None)
  Receive Date: 20110923
  Receipt Date: 20110916
  Transmission Date: 20111222
  Serious: Yes (Other)
  Sender: FDA-Public Use
  Company Number: 2011SP043579

PATIENT
  Sex: Male

DRUGS (3)
  1. MIRTAZAPINE [Suspect]
     Indication: ANXIETY
  2. MIRTAZAPINE [Suspect]
     Indication: DEPRESSION
  3. VITAMIN D [Concomitant]

REACTIONS (6)
  - HEADACHE [None]
  - SLEEP DISORDER [None]
  - MENTAL IMPAIRMENT [None]
  - BRAIN OEDEMA [None]
  - AMNESIA [None]
  - COGNITIVE DISORDER [None]
